FAERS Safety Report 5179998-2 (Version None)
Quarter: 2006Q4

REPORT INFORMATION
  Report Type: 
  Country: None (occurrence: None)
  Receive Date: 20061211
  Receipt Date: 20061206
  Transmission Date: 20070319
  Serious: Yes (Death)
  Sender: FDA-Public Use
  Company Number: E2020-00762-SPO-GB

PATIENT
  Age: 75 Year
  Sex: Male

DRUGS (3)
  1. ARICEPT [Suspect]
     Indication: CEREBRAL ATROPHY
     Dosage: 500 MG, 50 IN 1 D, ORAL
     Route: 048
  2. ARICEPT [Suspect]
     Indication: DEMENTIA
     Dosage: 500 MG, 50 IN 1 D, ORAL
     Route: 048
  3. GALANTAMINE HYDROBROMIDE [Concomitant]

REACTIONS (3)
  - BRADYCARDIA [None]
  - COMPLETED SUICIDE [None]
  - HYPOTENSION [None]
